FAERS Safety Report 4612986-0 (Version None)
Quarter: 2005Q1

REPORT INFORMATION
  Report Type: 
  Country: None (occurrence: None)
  Receive Date: 20050318
  Receipt Date: 20050307
  Transmission Date: 20050727
  Serious: Yes (Other)
  Sender: FDA-Public Use
  Company Number: US-JNJFOC-20041202419

PATIENT
  Sex: Female
  Weight: 54.43 kg

DRUGS (15)
  1. REMICADE [Suspect]
     Route: 042
  2. REMICADE [Suspect]
     Route: 042
  3. REMICADE [Suspect]
     Indication: RHEUMATOID ARTHRITIS
     Route: 042
  4. PREVACID [Concomitant]
  5. KLONIPIN [Concomitant]
  6. ESTRADIOL [Concomitant]
  7. SALAGEN [Concomitant]
  8. FLEXORIL [Concomitant]
  9. ASPIRIN [Concomitant]
  10. CALCIUM GLUCONATE [Concomitant]
  11. FOLIC ACID [Concomitant]
  12. ELADIL [Concomitant]
     Indication: MIGRAINE
  13. SYSTANE [Concomitant]
  14. IMITREX [Concomitant]
  15. FOCALIN [Concomitant]

REACTIONS (4)
  - HYSTERECTOMY [None]
  - IRRITABLE BOWEL SYNDROME [None]
  - JOINT SWELLING [None]
  - ONYCHOMYCOSIS [None]
